FAERS Safety Report 21230342 (Version 1)
Quarter: 2022Q3

REPORT INFORMATION
  Report Type: Spontaneous
  Country: US (occurrence: US)
  Receive Date: 20220818
  Receipt Date: 20220818
  Transmission Date: 20221026
  Serious: Yes (Other)
  Sender: FDA-Public Use
  Company Number: US-Teikoku Pharma USA-TPU2022-00752

PATIENT
  Age: 79 Year
  Sex: Male
  Weight: 63.560 kg

DRUGS (3)
  1. LIDOCAINE PATCH [Suspect]
     Active Substance: LIDOCAINE
     Indication: Back pain
     Dosage: UP TO 3 PATCHES AT ANY GIVEN TIME ON THE AFFECTED AREA
     Route: 061
  2. ELIQUIS [Concomitant]
     Active Substance: APIXABAN
  3. Tylenol Extra Strengh [Concomitant]

REACTIONS (3)
  - Constipation [Not Recovered/Not Resolved]
  - Hepatic cancer [Unknown]
  - Liver operation [Unknown]

NARRATIVE: CASE EVENT DATE: 20211201
